FAERS Safety Report 10501361 (Version 1)
Quarter: 2014Q4

REPORT INFORMATION
  Report Type: Spontaneous
  Country: US (occurrence: US)
  Receive Date: 20141007
  Receipt Date: 20141007
  Transmission Date: 20150528
  Serious: Yes (Hospitalization)
  Sender: FDA-Public Use
  Company Number: US-JNJFOC-20141000540

PATIENT
  Age: 67 Year
  Sex: Male
  Weight: 79.38 kg

DRUGS (1)
  1. XARELTO [Suspect]
     Active Substance: RIVAROXABAN
     Indication: THROMBOSIS
     Route: 048

REACTIONS (3)
  - Pericardial haemorrhage [Unknown]
  - Pulmonary haemorrhage [Unknown]
  - Unevaluable event [Unknown]

NARRATIVE: CASE EVENT DATE: 201409
